FAERS Safety Report 6672277-3 (Version None)
Quarter: 2010Q2

REPORT INFORMATION
  Report Type: 
  Country: None (occurrence: None)
  Receive Date: 20100408
  Receipt Date: 20100330
  Transmission Date: 20101027
  Serious: No
  Sender: FDA-Public Use
  Company Number: US-BIOGENIDEC-2010BI011196

PATIENT
  Sex: Female

DRUGS (1)
  1. TYSABRI [Suspect]
     Indication: MULTIPLE SCLEROSIS
     Route: 042
     Dates: start: 20081010

REACTIONS (17)
  - ASTHENIA [None]
  - BACTERIAL INFECTION [None]
  - CONTUSION [None]
  - DECREASED IMMUNE RESPONSIVENESS [None]
  - EAR INFECTION [None]
  - EYE INFECTION [None]
  - FALL [None]
  - FURUNCLE [None]
  - MALAISE [None]
  - MUSCULOSKELETAL CHEST PAIN [None]
  - NASOPHARYNGITIS [None]
  - OESOPHAGITIS [None]
  - PAIN IN EXTREMITY [None]
  - SINUSITIS [None]
  - SKELETAL INJURY [None]
  - ULCER [None]
  - URINARY TRACT INFECTION [None]
